FAERS Safety Report 12728170 (Version 1)
Quarter: 2016Q3

REPORT INFORMATION
  Report Type: Spontaneous
  Country: US (occurrence: US)
  Receive Date: 20160909
  Receipt Date: 20160909
  Transmission Date: 20161109
  Serious: No
  Sender: FDA-Public Use
  Company Number: US-BECTON DICKINSON-2016BDN00008

PATIENT
  Sex: Male
  Weight: 131.97 kg

DRUGS (5)
  1. PRINZIDE/ZESTORETIC [Concomitant]
     Dosage: 12.5 MG, 1X/DAY
     Route: 048
  2. CHLORAPREP WITH TINT [Suspect]
     Active Substance: CHLORHEXIDINE GLUCONATE\ISOPROPYL ALCOHOL
     Indication: INFECTION PROPHYLAXIS
     Dosage: 10.5 ML, TWICE, TO LEFT SHOULDER INCLUDING THE AXILLARY AREA
     Route: 061
     Dates: start: 20151231, end: 20151231
  3. LOTRISONE [Concomitant]
     Active Substance: BETAMETHASONE DIPROPIONATE\CLOTRIMAZOLE
     Dosage: 1 DOSAGE UNITS, 2X/DAY
     Route: 061
  4. REVATIO [Concomitant]
     Active Substance: SILDENAFIL CITRATE
     Dosage: 40-100 MG, UNK
     Route: 048
  5. ALCOHOL SCRUB [Suspect]
     Active Substance: ALCOHOL

REACTIONS (3)
  - Rash erythematous [Recovered/Resolved]
  - Application site vesicles [None]
  - Blister [Recovered/Resolved]

NARRATIVE: CASE EVENT DATE: 2016
